FAERS Safety Report 14182763 (Version 2)
Quarter: 2017Q4

REPORT INFORMATION
  Report Type: Spontaneous
  Country: US (occurrence: US)
  Receive Date: 20171113
  Receipt Date: 20171128
  Transmission Date: 20180321
  Serious: Yes (Other)
  Sender: FDA-Public Use
  Company Number: US-LPDUSPRD-20171514

PATIENT
  Age: 20 Year
  Sex: Female

DRUGS (3)
  1. BETAMETHASONE SODIUM PHOSPHATE AND BETAMETHASONE ACETATE INJ SUSP, USP [Suspect]
     Active Substance: BETAMETHASONE ACETATE\BETAMETHASONE SODIUM PHOSPHATE
     Dosage: 0.5 ML
     Route: 065
     Dates: start: 20170928, end: 20170928
  2. LIDOCAINE 2 % [Suspect]
     Active Substance: LIDOCAINE
     Dosage: 1 ML
     Route: 065
     Dates: start: 20170928
  3. FLUOXETINE [Concomitant]
     Active Substance: FLUOXETINE HYDROCHLORIDE
     Dosage: 20 MG
     Route: 048

REACTIONS (2)
  - Abscess limb [Unknown]
  - Off label use [Unknown]

NARRATIVE: CASE EVENT DATE: 20170928
